FAERS Safety Report 11987467 (Version 1)
Quarter: 2016Q1

REPORT INFORMATION
  Report Type: Spontaneous
  Country: US (occurrence: None)
  Receive Date: 20160201
  Receipt Date: 20160201
  Transmission Date: 20160526
  Serious: Yes (Other)
  Sender: FDA-Public Use
  Company Number: None

PATIENT
  Age: 30 Year
  Sex: Female
  Weight: 45.36 kg

DRUGS (2)
  1. AZITHROMYCIN ANHYDROUS. [Suspect]
     Active Substance: AZITHROMYCIN ANHYDROUS
     Indication: ATYPICAL PNEUMONIA
     Dosage: 2 10ML BY MOUTH FOR 6 DAYS ONCE DAILY TAKEN BY MOUTH
     Route: 048
     Dates: start: 20160116, end: 20160118
  2. ATENOLOL. [Concomitant]
     Active Substance: ATENOLOL

REACTIONS (5)
  - Anxiety [None]
  - Feeling abnormal [None]
  - Fear [None]
  - Restlessness [None]
  - Postural orthostatic tachycardia syndrome [None]

NARRATIVE: CASE EVENT DATE: 20160116
